APPROVED DRUG PRODUCT: DOBUTREX
Active Ingredient: DOBUTAMINE HYDROCHLORIDE
Strength: EQ 12.5MG BASE/ML **Federal Register determination that product was not discontinued or withdrawn for safety or effectiveness reasons**
Dosage Form/Route: INJECTABLE;INJECTION
Application: N017820 | Product #002
Applicant: ELI LILLY AND CO
Approved: Approved Prior to Jan 1, 1982 | RLD: Yes | RS: No | Type: DISCN